FAERS Safety Report 8879970 (Version 2)
Quarter: 2012Q4

REPORT INFORMATION
  Report Type: 
  Country: US (occurrence: US)
  Receive Date: 20121031
  Receipt Date: 20121128
  Transmission Date: 20130627
  Serious: Yes (Death, Other)
  Sender: FDA-Public Use
  Company Number: US-ELI_LILLY_AND_COMPANY-US201110001883

PATIENT
  Age: 79 Year
  Sex: Female
  Weight: 61.22 kg

DRUGS (4)
  1. FORTEO [Suspect]
     Indication: OSTEOPOROSIS
     Dosage: 20 ug, qd
  2. FORTEO [Suspect]
     Dosage: 20 ug, qd
  3. FORTEO [Suspect]
     Dosage: 20 ug, qd
     Dates: start: 20120512
  4. FORTEO [Suspect]
     Dosage: 20 ug, qd
     Dates: start: 20110927

REACTIONS (3)
  - Neoplasm malignant [Fatal]
  - Back pain [Not Recovered/Not Resolved]
  - Medication error [Unknown]
